FAERS Safety Report 5447320-X (Version None)
Quarter: 2007Q3

REPORT INFORMATION
  Report Type: 
  Country: None (occurrence: None)
  Receive Date: 20070910
  Receipt Date: 20070830
  Transmission Date: 20080115
  Serious: Yes (Life-Threatening, Hospitalization)
  Sender: FDA-Public Use
  Company Number: JP-BRISTOL-MYERS SQUIBB COMPANY-13894787

PATIENT
  Age: 78 Year
  Sex: Male

DRUGS (6)
  1. GATIFLOXACIN [Suspect]
     Indication: URINARY TRACT INFECTION
     Route: 048
     Dates: start: 20070821, end: 20070822
  2. ACTOS [Concomitant]
     Route: 048
     Dates: start: 20070802, end: 20070822
  3. GLYBURIDE [Concomitant]
     Route: 048
     Dates: start: 20070802, end: 20070822
  4. NIVADIL [Concomitant]
     Route: 048
     Dates: start: 20070802, end: 20070822
  5. HARNAL [Concomitant]
     Route: 048
     Dates: start: 20060224, end: 20070822
  6. ARRESTEN [Concomitant]
     Route: 048

REACTIONS (2)
  - HYPOGLYCAEMIA [None]
  - PYREXIA [None]
